FAERS Safety Report 4950063-X (Version None)
Quarter: 2006Q1

REPORT INFORMATION
  Report Type: 
  Country: None (occurrence: None)
  Receive Date: 20060320
  Receipt Date: 20060320
  Transmission Date: 20060701
  Serious: Yes (Other)
  Sender: FDA-Public Use
  Company Number: None

PATIENT
  Sex: Female

DRUGS (1)
  1. GLYBURIDE AND METFORMIN HCL [Suspect]
     Indication: DIABETES MELLITUS
     Dosage: ONE QD PO
     Route: 048
     Dates: start: 20060310, end: 20060311

REACTIONS (2)
  - PHARMACEUTICAL PRODUCT COMPLAINT [None]
  - SENSORY LOSS [None]
